FAERS Safety Report 21986921 (Version 1)
Quarter: 2023Q1

REPORT INFORMATION
  Report Type: Other
  Country: AU (occurrence: AU)
  Receive Date: 20230213
  Receipt Date: 20230213
  Transmission Date: 20230417
  Serious: Yes (Other)
  Sender: FDA-Public Use
  Company Number: AU-MAYNE PHARMA-2023MYN000233

PATIENT

DRUGS (6)
  1. DOXYCYCLINE HYCLATE [Suspect]
     Active Substance: DOXYCYCLINE HYCLATE
     Indication: Acquired perforating dermatosis
  2. ACITRETIN [Suspect]
     Active Substance: ACITRETIN
     Indication: Acquired perforating dermatosis
  3. CYPROHEPTADINE HYDROCHLORIDE [Suspect]
     Active Substance: CYPROHEPTADINE HYDROCHLORIDE
     Indication: Acquired perforating dermatosis
  4. DAPSONE [Suspect]
     Active Substance: DAPSONE
     Indication: Acquired perforating dermatosis
  5. FEXOFENADINE HYDROCHLORIDE [Suspect]
     Active Substance: FEXOFENADINE HYDROCHLORIDE
     Indication: Acquired perforating dermatosis
  6. PREDNISOLONE [Concomitant]
     Active Substance: PREDNISOLONE
     Indication: Acquired perforating dermatosis
     Dosage: 0.5 MG, QD

REACTIONS (2)
  - Treatment failure [Unknown]
  - Off label use [Unknown]
